FAERS Safety Report 6293469-1 (Version None)
Quarter: 2009Q3

REPORT INFORMATION
  Report Type: 
  Country: None (occurrence: None)
  Receive Date: 20090803
  Receipt Date: 20090723
  Transmission Date: 20100115
  Serious: Yes (Other)
  Sender: FDA-Public Use
  Company Number: US-BIOGENIDEC-2008BI007292

PATIENT
  Age: 23 Year
  Sex: Female

DRUGS (6)
  1. AVONEX [Suspect]
     Indication: MULTIPLE SCLEROSIS
     Route: 030
     Dates: start: 20020101, end: 20030101
  2. AVONEX [Suspect]
     Route: 030
     Dates: start: 20030101, end: 20030101
  3. AVONEX [Suspect]
     Route: 030
     Dates: start: 20030101, end: 20031001
  4. AVONEX [Suspect]
     Route: 030
     Dates: start: 20040801, end: 20051201
  5. AVONEX [Suspect]
     Route: 030
     Dates: start: 20061101, end: 20070101
  6. AVONEX [Suspect]
     Route: 030
     Dates: end: 20090101

REACTIONS (3)
  - ABORTION SPONTANEOUS [None]
  - ADVERSE EVENT [None]
  - OVARIAN CYST RUPTURED [None]
